FAERS Safety Report 5036243-6 (Version None)
Quarter: 2006Q2

REPORT INFORMATION
  Report Type: 
  Country: None (occurrence: None)
  Receive Date: 20060531
  Receipt Date: 20060329
  Transmission Date: 20061013
  Serious: Yes (Hospitalization)
  Sender: FDA-Public Use
  Company Number: PHEH2006US01161

PATIENT
  Age: 81 Year
  Sex: Male
  Weight: 78.5 kg

DRUGS (15)
  1. EXJADE [Suspect]
     Indication: BLOOD IRON INCREASED
     Dosage: 1500 MG, QD, ORAL
     Route: 048
     Dates: start: 20060114, end: 20060115
  2. ACTOS (PIOGLITAZONE, PIOGLITAZONE HYDROCHLORIDE) [Concomitant]
  3. ADVAIR DISKUS (FLUTICASONE PROPIONATE, SALMETEROL XINAFOATE) [Concomitant]
  4. ALTACE [Concomitant]
  5. ASPIRIN [Concomitant]
  6. CARDIZEM [Concomitant]
  7. FOLATE [Concomitant]
  8. LASIX [Concomitant]
  9. LIPITOR [Concomitant]
  10. METFORMIN HCL [Concomitant]
  11. MVI (VITAMINS NOS) [Concomitant]
  12. NASACORT AQ (TRIAMCINOLONE ACETONIDE) AEROSOL (SPRAY AND INHALATION) [Concomitant]
  13. NEXIUM [Concomitant]
  14. THALIDOMIDE (THALIDOMIDE) [Concomitant]
  15. VICODIN [Concomitant]

REACTIONS (6)
  - ABDOMINAL PAIN [None]
  - BLOOD ALBUMIN DECREASED [None]
  - COMPUTERISED TOMOGRAM ABDOMEN ABNORMAL [None]
  - LYMPHOCYTE PERCENTAGE DECREASED [None]
  - PROTEIN TOTAL DECREASED [None]
  - SERUM FERRITIN INCREASED [None]
